FAERS Safety Report 4734507-4 (Version None)
Quarter: 2005Q3

REPORT INFORMATION
  Report Type: 
  Country: None (occurrence: None)
  Receive Date: 20050804
  Receipt Date: 20050421
  Transmission Date: 20060218
  Serious: Yes (Death, Hospitalization)
  Sender: FDA-Public Use
  Company Number: 200513391US

PATIENT
  Sex: Female

DRUGS (3)
  1. TAXOTERE [Suspect]
     Indication: BREAST CANCER
     Route: 042
     Dates: start: 20041228, end: 20041228
  2. ADRIAMYCIN PFS [Concomitant]
     Indication: BREAST CANCER
     Dosage: DOSE: UNK
  3. CYTOXAN [Concomitant]
     Indication: BREAST CANCER
     Dosage: DOSE: UNK

REACTIONS (6)
  - ACUTE RESPIRATORY DISTRESS SYNDROME [None]
  - CEREBRAL INFARCTION [None]
  - HERPES SIMPLEX [None]
  - MULTI-ORGAN FAILURE [None]
  - PYREXIA [None]
  - VIRUS SEROLOGY TEST POSITIVE [None]
